FAERS Safety Report 4789791-8 (Version None)
Quarter: 2005Q4

REPORT INFORMATION
  Report Type: 
  Country: None (occurrence: None)
  Receive Date: 20051006
  Receipt Date: 20051003
  Transmission Date: 20060501
  Serious: Yes (Other)
  Sender: FDA-Public Use
  Company Number: CA-GLAXOSMITHKLINE-A0576940A

PATIENT
  Sex: Female

DRUGS (1)
  1. PAXIL [Suspect]
     Indication: DRUG USE FOR UNKNOWN INDICATION
     Dosage: 20MG PER DAY
     Route: 048
     Dates: start: 20030601, end: 20040501

REACTIONS (29)
  - ABDOMINAL PAIN UPPER [None]
  - ACNE [None]
  - ALOPECIA [None]
  - AMNESIA [None]
  - APHASIA [None]
  - BURNING SENSATION [None]
  - BURSITIS [None]
  - CONJUNCTIVITIS [None]
  - DIZZINESS [None]
  - EAR INFECTION [None]
  - FATIGUE [None]
  - HEADACHE [None]
  - HYPERHIDROSIS [None]
  - LOSS OF LIBIDO [None]
  - MONARTHRITIS [None]
  - MUSCLE SPASMS [None]
  - MUSCULOSKELETAL DISCOMFORT [None]
  - NECK INJURY [None]
  - PAIN [None]
  - PARAESTHESIA [None]
  - RENAL PAIN [None]
  - ROSACEA [None]
  - SWELLING [None]
  - TREMOR [None]
  - VAGINAL INFECTION [None]
  - VASCULAR INJURY [None]
  - VISION BLURRED [None]
  - VOMITING [None]
  - WEIGHT DECREASED [None]
